FAERS Safety Report 5888640-4 (Version None)
Quarter: 2008Q3

REPORT INFORMATION
  Report Type: 
  Country: None (occurrence: None)
  Receive Date: 20080918
  Receipt Date: 20080908
  Transmission Date: 20090109
  Serious: Yes (Other)
  Sender: FDA-Public Use
  Company Number: FR-MERCK-0809FRA00032

PATIENT
  Age: 66 Year
  Sex: Female

DRUGS (6)
  1. JANUVIA [Suspect]
     Indication: TYPE 2 DIABETES MELLITUS
     Route: 048
     Dates: start: 20080801, end: 20080801
  2. RILMENIDINE PHOSPHATE [Concomitant]
     Route: 048
  3. HYDROCHLOROTHIAZIDE AND IRBESARTAN [Concomitant]
     Indication: HYPERTENSION
     Route: 048
  4. ATORVASTATIN CALCIUM [Concomitant]
     Route: 048
  5. METFORMIN HYDROCHLORIDE [Concomitant]
     Indication: TYPE 2 DIABETES MELLITUS
     Route: 048
  6. NEBIVOLOL HYDROCHLORIDE [Concomitant]
     Route: 048

REACTIONS (3)
  - DERMATITIS BULLOUS [None]
  - OEDEMA PERIPHERAL [None]
  - VASCULITIS [None]
